FAERS Safety Report 5094290-2 (Version None)
Quarter: 2006Q3

REPORT INFORMATION
  Report Type: 
  Country: None (occurrence: None)
  Receive Date: 20060830
  Receipt Date: 20060830
  Transmission Date: 20061208
  Serious: Yes (Death, Life-Threatening, Hospitalization)
  Sender: FDA-Public Use
  Company Number: None

PATIENT
  Age: 78 Year
  Sex: Male
  Weight: 54.4 kg

DRUGS (8)
  1. MOBIC [Suspect]
     Indication: OSTEOARTHRITIS
     Dosage: 7.5 MG TWO TIMES DAILY PO
     Route: 048
  2. CHOLESTYRAMINE [Concomitant]
  3. OXYBUTYNIN [Concomitant]
  4. PANTOPRAZOLE SODIUM [Concomitant]
  5. PROPOXYPHENE HYDROCHLORIDE [Concomitant]
  6. LEVOTHYROXINE SODIUM [Concomitant]
  7. OYSTERSHELL CALCIUM + D [Concomitant]
  8. MULTIVITAMIN + IRON [Concomitant]

REACTIONS (20)
  - ABDOMINAL PAIN [None]
  - ASTHENIA [None]
  - COMA [None]
  - DEPRESSED LEVEL OF CONSCIOUSNESS [None]
  - DEPRESSION [None]
  - DIZZINESS [None]
  - DYSPNOEA [None]
  - GASTROINTESTINAL HAEMORRHAGE [None]
  - HAEMATEMESIS [None]
  - HEART RATE INCREASED [None]
  - HYPOTENSION [None]
  - HYPOXIA [None]
  - MALABSORPTION [None]
  - MALNUTRITION [None]
  - MELAENA [None]
  - ORAL INTAKE REDUCED [None]
  - PULSE PRESSURE DECREASED [None]
  - RESPIRATION ABNORMAL [None]
  - SYSTEMIC INFLAMMATORY RESPONSE SYNDROME [None]
  - WEIGHT DECREASED [None]
